FAERS Safety Report 24531651 (Version 3)
Quarter: 2025Q2

REPORT INFORMATION
  Report Type: Report from Study
  Country: CL (occurrence: CL)
  Receive Date: 20241022
  Receipt Date: 20250506
  Transmission Date: 20250716
  Serious: Yes (Other)
  Sender: AMGEN
  Company Number: CL-AMGEN-CHLSL2022227697

PATIENT
  Age: 68 Year
  Sex: Female

DRUGS (2)
  1. REPATHA [Suspect]
     Active Substance: EVOLOCUMAB
     Indication: Arteriosclerosis
     Dosage: 140 MILLIGRAM, Q2WK
     Route: 058
     Dates: start: 20221122
  2. REPATHA [Suspect]
     Active Substance: EVOLOCUMAB
     Route: 058

REACTIONS (6)
  - Dacryostenosis acquired [Unknown]
  - COVID-19 [Recovering/Resolving]
  - Memory impairment [Not Recovered/Not Resolved]
  - Puncture site pain [Unknown]
  - Application site oedema [Unknown]
  - Injection site discomfort [Unknown]

NARRATIVE: CASE EVENT DATE: 20221229
